FAERS Safety Report 10623087 (Version 2)
Quarter: 2014Q4

REPORT INFORMATION
  Report Type: Spontaneous
  Country: US (occurrence: US)
  Receive Date: 20141203
  Receipt Date: 20141211
  Transmission Date: 20150529
  Serious: Yes (Other)
  Sender: FDA-Public Use
  Company Number: US-BAXTER-2014BAX070723

PATIENT
  Sex: Male

DRUGS (2)
  1. HEMOFIL M [Suspect]
     Active Substance: ANTIHEMOPHILIC FACTOR HUMAN
     Indication: FACTOR VIII DEFICIENCY
     Route: 065
     Dates: start: 2000, end: 2010
  2. HEMOFIL M [Suspect]
     Active Substance: ANTIHEMOPHILIC FACTOR HUMAN
     Indication: HAEMORRHAGE

REACTIONS (2)
  - Factor VIII inhibition [Not Recovered/Not Resolved]
  - Haemarthrosis [Unknown]

NARRATIVE: CASE EVENT DATE: 2010
